FAERS Safety Report 6435148-3 (Version None)
Quarter: 2009Q4

REPORT INFORMATION
  Report Type: 
  Country: None (occurrence: None)
  Receive Date: 20091110
  Receipt Date: 20090814
  Transmission Date: 20100525
  Serious: Yes (Other)
  Sender: FDA-Public Use
  Company Number: US-BRISTOL-MYERS SQUIBB COMPANY-14742324

PATIENT
  Age: 60 Year
  Sex: Female

DRUGS (1)
  1. IXEMPRA KIT [Suspect]
     Dosage: RECEIVED 2ND INF.

REACTIONS (3)
  - DYSURIA [None]
  - PALMAR-PLANTAR ERYTHRODYSAESTHESIA SYNDROME [None]
  - PRURITUS [None]
